FAERS Safety Report 8921994 (Version 1)
Quarter: 2012Q4

REPORT INFORMATION
  Report Type: Spontaneous
  Country: US (occurrence: None)
  Receive Date: 20121120
  Receipt Date: 20121120
  Transmission Date: 20130627
  Serious: Yes (Death)
  Sender: FDA-Public Use
  Company Number: None

PATIENT
  Age: 75 Year
  Sex: Male

DRUGS (2)
  1. LUCENTIS [Suspect]
     Indication: WET MACULAR DEGENERATION
     Dosage: 1 every 4 weeks intraocular
     Route: 031
     Dates: start: 20101230, end: 20120423
  2. EYLEA [Suspect]
     Indication: WET MACULAR DEGENERATION
     Dosage: 1 every 4-8 weeks intraocula
     Route: 031
     Dates: start: 20120524, end: 20121016

REACTIONS (1)
  - Death [None]
